FAERS Safety Report 6740180-6 (Version None)
Quarter: 2010Q2

REPORT INFORMATION
  Report Type: 
  Country: None (occurrence: None)
  Receive Date: 20100525
  Receipt Date: 20100519
  Transmission Date: 20101027
  Serious: Yes (Hospitalization)
  Sender: FDA-Public Use
  Company Number: A0789309A

PATIENT
  Age: 57 Year
  Sex: Female
  Weight: 61.4 kg

DRUGS (7)
  1. AVANDIA [Suspect]
     Indication: DIABETES MELLITUS
     Dosage: 4MG PER DAY
     Route: 048
  2. ASPIRIN [Concomitant]
  3. PLAVIX [Concomitant]
  4. GLUCOPHAGE [Concomitant]
  5. NORVASC [Concomitant]
  6. DAYPRO [Concomitant]
  7. ALTACE [Concomitant]

REACTIONS (2)
  - CARDIAC FAILURE CONGESTIVE [None]
  - CORONARY ARTERY DISEASE [None]
